FAERS Safety Report 7007487-9 (Version None)
Quarter: 2010Q3

REPORT INFORMATION
  Report Type: 
  Country: None (occurrence: None)
  Receive Date: 20100920
  Receipt Date: 20100909
  Transmission Date: 20110219
  Serious: Yes (Life-Threatening, Hospitalization, Other)
  Sender: FDA-Public Use
  Company Number: 2010SP001304

PATIENT
  Age: 13 Year
  Sex: Male
  Weight: 49.4 kg

DRUGS (4)
  1. CICLESONIDE HFA (160 MG) [Suspect]
     Indication: RHINITIS PERENNIAL
     Dosage: 160 UG NASAL
     Route: 045
     Dates: start: 20091016, end: 20100422
  2. XYZAL [Concomitant]
  3. ZITHROMAX [Concomitant]
  4. MUCINEX [Concomitant]

REACTIONS (6)
  - AUTOIMMUNE THROMBOCYTOPENIA [None]
  - HAEMATOMA [None]
  - IDIOPATHIC THROMBOCYTOPENIC PURPURA [None]
  - JOINT INJURY [None]
  - MEGAKARYOCYTES ABNORMAL [None]
  - NASAL CONGESTION [None]
